FAERS Safety Report 17742189 (Version 2)
Quarter: 2020Q2

REPORT INFORMATION
  Report Type: Spontaneous
  Country: GB (occurrence: GB)
  Receive Date: 20200504
  Receipt Date: 20200513
  Transmission Date: 20200714
  Serious: Yes (Death, Life-Threatening, Hospitalization, Other)
  Sender: FDA-Public Use
  Company Number: GB-BAXTER-2020BAX009403

PATIENT
  Age: 59 Year
  Sex: Male

DRUGS (13)
  1. CYCLOPHOSPHAMIDE. [Concomitant]
     Active Substance: CYCLOPHOSPHAMIDE
     Route: 065
     Dates: start: 2008
  2. DOXIL [Suspect]
     Active Substance: DOXORUBICIN HYDROCHLORIDE
     Indication: LIGHT CHAIN DISEASE
     Route: 065
     Dates: start: 2005
  3. DEXAMETHASONE. [Concomitant]
     Active Substance: DEXAMETHASONE
     Indication: LIGHT CHAIN DISEASE
     Route: 065
     Dates: start: 2011
  4. VELCADE [Concomitant]
     Active Substance: BORTEZOMIB
     Indication: LIGHT CHAIN DISEASE
     Dosage: CYCLICAL
     Route: 065
     Dates: start: 2014
  5. METHYLPREDNISOLONE. [Concomitant]
     Active Substance: METHYLPREDNISOLONE
     Indication: LIGHT CHAIN DISEASE
     Route: 065
     Dates: start: 2005
  6. DEXAMETHASONE. [Concomitant]
     Active Substance: DEXAMETHASONE
     Dosage: CYCLICAL
     Route: 065
     Dates: start: 2014
  7. DEXAMETHASONE. [Concomitant]
     Active Substance: DEXAMETHASONE
     Dosage: CYCLICAL
     Route: 065
     Dates: start: 2016, end: 2018
  8. CYCLOPHOSPHAMIDE. [Concomitant]
     Active Substance: CYCLOPHOSPHAMIDE
     Indication: LIGHT CHAIN DISEASE
     Route: 065
     Dates: start: 2005
  9. THALIDOMIDE [Concomitant]
     Active Substance: THALIDOMIDE
     Indication: LIGHT CHAIN DISEASE
     Route: 065
     Dates: start: 2008
  10. THALIDOMIDE [Concomitant]
     Active Substance: THALIDOMIDE
     Route: 065
     Dates: start: 2011
  11. LENALIDOMIDE [Concomitant]
     Active Substance: LENALIDOMIDE
     Indication: LIGHT CHAIN DISEASE
     Dosage: CYCLICAL
     Route: 065
     Dates: start: 2016, end: 2018
  12. VINCRISTINE [Concomitant]
     Active Substance: VINCRISTINE
     Indication: LIGHT CHAIN DISEASE
     Route: 065
     Dates: start: 2005
  13. DEXAMETHASONE. [Concomitant]
     Active Substance: DEXAMETHASONE
     Route: 065
     Dates: start: 2008

REACTIONS (1)
  - Progressive multifocal leukoencephalopathy [Fatal]
